FAERS Safety Report 5648919-8 (Version None)
Quarter: 2008Q1

REPORT INFORMATION
  Report Type: 
  Country: None (occurrence: None)
  Receive Date: 20080303
  Receipt Date: 20080303
  Transmission Date: 20080703
  Serious: Yes (Life-Threatening)
  Sender: FDA-Public Use
  Company Number: None

PATIENT
  Age: 63 Year
  Sex: Male

DRUGS (1)
  1. PENICILLIN [Suspect]
     Indication: DENTAL TREATMENT
     Dosage: 500MG QID PO
     Route: 048
     Dates: start: 20080219, end: 20080219

REACTIONS (1)
  - ANAPHYLACTIC REACTION [None]
